FAERS Safety Report 26046578 (Version 1)
Quarter: 2025Q4

REPORT INFORMATION
  Report Type: Spontaneous
  Country: JP (occurrence: JP)
  Receive Date: 20251114
  Receipt Date: 20251114
  Transmission Date: 20260118
  Serious: Yes (Hospitalization)
  Sender: AKEBIA THERAPEUTICS
  Company Number: JP-JAPAN TOBACCO INC.-JT2024JP000168

PATIENT
  Age: 69 Year
  Sex: Male
  Weight: 60 kg

DRUGS (18)
  1. FERRIC CITRATE ANHYDROUS [Suspect]
     Active Substance: FERRIC CITRATE ANHYDROUS
     Indication: Product used for unknown indication
     Dosage: 250 MILLIGRAM, TID
     Route: 048
     Dates: start: 20240327, end: 20240514
  2. ENARODUSTAT [Suspect]
     Active Substance: ENARODUSTAT
     Indication: Nephrogenic anaemia
     Dosage: 4 MILLIGRAM, QD
     Route: 048
     Dates: start: 20240110, end: 20240221
  3. ENARODUSTAT [Suspect]
     Active Substance: ENARODUSTAT
     Dosage: 2 MILLIGRAM, QD
     Route: 048
     Dates: start: 20240222, end: 20240508
  4. ENARODUSTAT [Suspect]
     Active Substance: ENARODUSTAT
     Dosage: 3 MILLIGRAM, QD
     Route: 048
     Dates: start: 20240509, end: 20240515
  5. VONOPRAZAN FUMARATE [Concomitant]
     Active Substance: VONOPRAZAN FUMARATE
     Indication: Chronic gastritis
     Dosage: 10 MILLIGRAM, QD
     Route: 048
  6. BISOPROLOL FUMARATE [Concomitant]
     Active Substance: BISOPROLOL FUMARATE
     Indication: Hypertension
     Dosage: 1.25 MILLIGRAM, QD
     Route: 048
  7. BISOPROLOL FUMARATE [Concomitant]
     Active Substance: BISOPROLOL FUMARATE
     Indication: Atrial fibrillation
  8. AZOSEMIDE [Concomitant]
     Active Substance: AZOSEMIDE
     Indication: Diabetic nephropathy
     Dosage: 30 MILLIGRAM, QD
     Route: 048
  9. LIPITOR [Concomitant]
     Active Substance: ATORVASTATIN CALCIUM
     Indication: Dyslipidaemia
     Dosage: 5 MILLIGRAM, QD
     Route: 048
  10. ROCALTROL [Concomitant]
     Active Substance: CALCITRIOL
     Indication: Diabetic nephropathy
     Dosage: 0.25 MICROGRAM, QD
     Route: 048
  11. WARFARIN POTASSIUM [Concomitant]
     Active Substance: WARFARIN POTASSIUM
     Indication: Peripheral arterial occlusive disease
     Dosage: 2 MILLIGRAM, QD
     Route: 048
  12. SPIRONOLACTONE [Concomitant]
     Active Substance: SPIRONOLACTONE
     Indication: Hypertension
     Dosage: 25 MILLIGRAM, QD
     Route: 048
  13. CALCIUM CARBONATE [Concomitant]
     Active Substance: CALCIUM CARBONATE
     Indication: Diabetic nephropathy
     Dosage: 500 MILLIGRAM, TID
     Route: 048
     Dates: start: 20240207
  14. CALCIUM CARBONATE [Concomitant]
     Active Substance: CALCIUM CARBONATE
     Indication: Blood phosphorus increased
  15. TAVALISSE [Concomitant]
     Active Substance: FOSTAMATINIB
     Indication: Immune thrombocytopenia
     Dosage: 100 MILLIGRAM, QWK
     Route: 048
  16. CASANTHRANOL\DOCUSATE SODIUM [Concomitant]
     Active Substance: CASANTHRANOL\DOCUSATE SODIUM
     Indication: Product used for unknown indication
     Dosage: 2 DOSAGE FORM, TID
     Route: 048
     Dates: end: 20240514
  17. SULFAMETHOXAZOLE\TRIMETHOPRIM [Concomitant]
     Active Substance: SULFAMETHOXAZOLE\TRIMETHOPRIM
     Indication: Ischaemic skin ulcer
     Dosage: 1 DOSAGE FORMA, 3 TIMES/WK
     Route: 048
     Dates: end: 20240514
  18. ICOSAPENT [Concomitant]
     Active Substance: ICOSAPENT
     Indication: Dyslipidaemia
     Dosage: 900 MILLIGRAM, BID
     Route: 048
     Dates: start: 20240410

REACTIONS (6)
  - Peripheral arterial occlusive disease [Not Recovered/Not Resolved]
  - Pneumonia [Recovered/Resolved]
  - Endocarditis bacterial [Recovered/Resolved]
  - Periodontitis [Recovered/Resolved]
  - Blood phosphorus increased [Recovered/Resolved]
  - N-terminal prohormone brain natriuretic peptide increased [Not Recovered/Not Resolved]

NARRATIVE: CASE EVENT DATE: 20240117
